FAERS Safety Report 8869507 (Version 2)
Quarter: 2013Q4

REPORT INFORMATION
  Report Type: Spontaneous
  Country: US (occurrence: US)
  Receive Date: 20121028
  Receipt Date: 20131113
  Transmission Date: 20140711
  Serious: Yes (Other)
  Sender: FDA-Public Use
  Company Number: US-BAYER-2012-109938

PATIENT
  Age: 67 Year
  Sex: Female
  Weight: 45.35 kg

DRUGS (3)
  1. ALKA-SELTZER PLUS COLD FORMULA ORANGE ZEST [Suspect]
     Indication: NASOPHARYNGITIS
     Dosage: UNK
     Route: 048
     Dates: start: 2010
  2. ALKA-SELTZER PLUS COLD FORMULA ORANGE ZEST [Suspect]
     Indication: HYPERSENSITIVITY
     Dosage: 2 DF, ONCE
     Route: 048
     Dates: start: 20121017, end: 20121017
  3. SYNTHROID [Concomitant]

REACTIONS (3)
  - Haematochezia [Not Recovered/Not Resolved]
  - Blood pressure increased [None]
  - Off label use [None]
